FAERS Safety Report 18878722 (Version 1)
Quarter: 2021Q1

REPORT INFORMATION
  Report Type: Spontaneous
  Country: US (occurrence: US)
  Receive Date: 20210211
  Receipt Date: 20210211
  Transmission Date: 20210420
  Serious: Yes (Other)
  Sender: FDA-Public Use
  Company Number: None

PATIENT
  Age: 35 Year
  Sex: Female
  Weight: 96.75 kg

DRUGS (1)
  1. ELURYNG [Suspect]
     Active Substance: ETHINYL ESTRADIOL\ETONOGESTREL
     Indication: CONTRACEPTION
     Dosage: ?          QUANTITY:1 RING;OTHER FREQUENCY:INSERT FOR 3 WEEKS;?
     Route: 067
     Dates: start: 20210111, end: 20210201

REACTIONS (16)
  - Palpitations [None]
  - Anxiety [None]
  - Panic attack [None]
  - Drug ineffective [None]
  - Hypophagia [None]
  - Morbid thoughts [None]
  - Hypertension [None]
  - Fatigue [None]
  - Dry throat [None]
  - Middle insomnia [None]
  - Headache [None]
  - Chills [None]
  - Tremor [None]
  - Feeling hot [None]
  - Blood pressure increased [None]
  - Vision blurred [None]

NARRATIVE: CASE EVENT DATE: 20210206
